FAERS Safety Report 4664605-5 (Version None)
Quarter: 2005Q2

REPORT INFORMATION
  Report Type: 
  Country: None (occurrence: None)
  Receive Date: 20050518
  Receipt Date: 20050511
  Transmission Date: 20051028
  Serious: Yes (Hospitalization)
  Sender: FDA-Public Use
  Company Number: HCM-0065

PATIENT
  Age: 79 Year
  Sex: Male

DRUGS (3)
  1. HYCAMTIN [Suspect]
     Dosage: .8MG PER DAY
     Route: 042
     Dates: start: 20040402, end: 20040408
  2. ETOPOSIDE [Suspect]
     Dosage: 100MG PER DAY
     Route: 042
     Dates: start: 20040406, end: 20040408
  3. RAMOSETRON HYDROCHLORIDE [Concomitant]
     Dosage: .3MG PER DAY
     Route: 042
     Dates: start: 20040402, end: 20040408

REACTIONS (7)
  - ANAEMIA [None]
  - HAEMOGLOBIN DECREASED [None]
  - NEUTROPHIL COUNT DECREASED [None]
  - PLATELET COUNT DECREASED [None]
  - PROTEIN TOTAL DECREASED [None]
  - RED BLOOD CELL COUNT DECREASED [None]
  - WHITE BLOOD CELL COUNT DECREASED [None]
